FAERS Safety Report 9171606 (Version 1)
Quarter: 2013Q1

REPORT INFORMATION
  Report Type: Spontaneous
  Country: US (occurrence: US)
  Receive Date: 20130319
  Receipt Date: 20130319
  Transmission Date: 20140127
  Serious: No
  Sender: FDA-Public Use
  Company Number: US-PFIZER INC-2013086621

PATIENT
  Age: 64 Year
  Sex: Male
  Weight: 89.8 kg

DRUGS (3)
  1. CORTISONE [Suspect]
     Dosage: UNK
     Route: 048
     Dates: start: 201302, end: 201303
  2. LIPITOR [Concomitant]
     Indication: BLOOD CHOLESTEROL INCREASED
     Dosage: 10 MG, UNK
  3. VERAPAMIL [Concomitant]
     Indication: HYPERTENSION
     Dosage: 5 MG, UNK

REACTIONS (2)
  - Heart rate increased [Unknown]
  - Palpitations [Unknown]
